FAERS Safety Report 10670492 (Version 2)
Quarter: 2014Q4

REPORT INFORMATION
  Report Type: Spontaneous
  Country: JP (occurrence: None)
  Receive Date: 20141219
  Receipt Date: 20141222
  Transmission Date: 20150529
  Serious: Yes (Disabling, Other)
  Sender: FDA-Public Use
  Company Number: 201401228

PATIENT
  Age: 68 Year
  Sex: Female

DRUGS (13)
  1. BRONUCK [Suspect]
     Active Substance: BROMFENAC SODIUM
     Indication: INFLAMMATION
     Dosage: 1 GTT, BID, OU, OPHTHALMIC
     Route: 047
     Dates: start: 20070517, end: 20070620
  2. TRUSOPT [Suspect]
     Active Substance: DORZOLAMIDE HYDROCHLORIDE
     Indication: OPEN ANGLE GLAUCOMA
     Route: 047
     Dates: start: 20070130, end: 20070527
  3. XALATAN [Suspect]
     Active Substance: LATANOPROST
     Indication: OPEN ANGLE GLAUCOMA
     Dosage: 1 GTT, SINGLE, OU, OPHTHALMIC
     Route: 047
     Dates: start: 20070129, end: 20070515
  4. CEFZON [Suspect]
     Active Substance: CEFDINIR
     Indication: INFECTION PROPHYLAXIS
     Dosage: 1 DF, TID, ORAL
     Route: 048
     Dates: start: 20070517, end: 20070519
  5. CRAVIT [Suspect]
     Active Substance: LEVOFLOXACIN
     Indication: OPEN ANGLE GLAUCOMA
     Dosage: 1 GTT, QID, OU, OPHTHALMIC
     Route: 047
     Dates: start: 20070517, end: 20070620
  6. OFTECTOR [Suspect]
     Active Substance: OFLOXACIN
     Indication: CATARACT OPERATION
     Dosage: 1 GTT, TID, OD, OPHTHALMIC
     Route: 047
     Dates: start: 20070508, end: 20070515
  7. ASPARA K [Suspect]
     Active Substance: POTASSIUM ASPARTATE
     Indication: OCULAR HYPERTENSION
     Dosage: ! DF, SINGLE, ORAL
     Route: 048
     Dates: start: 20070524, end: 20070525
  8. MAXIPIME [Suspect]
     Active Substance: CEFEPIME HYDROCHLORIDE
     Indication: INFECTION PROPHYLAXIS
     Dosage: 1 MG, SINGLE, INTRAVENOUS
     Route: 042
     Dates: start: 20070516, end: 20070516
  9. SANPILO [Suspect]
     Active Substance: PILOCARPINE HYDROCHLORIDE
     Indication: OPEN ANGLE GLAUCOMA
     Dosage: 1 GTT, QID, OU, OPHTHALMIC
     Route: 047
     Dates: start: 20070410, end: 20070515
  10. DICLOD [Suspect]
     Active Substance: DICLOFENAC SODIUM
     Indication: CATARACT OPERATION
     Dosage: 1 GTT, TID, OD, OPHTHALMIC
     Route: 047
     Dates: start: 20070508, end: 20070515
  11. LOXONIN [Suspect]
     Active Substance: LOXOPROFEN SODIUM
     Indication: ANALGESIC THERAPY
     Route: 048
     Dates: start: 20070516, end: 20070516
  12. FML [Suspect]
     Active Substance: FLUOROMETHOLONE
     Indication: INFLAMMATION
     Dosage: 1 GTT, QID, OU, OPHTHALMIC
     Route: 047
     Dates: start: 20070517, end: 20070801
  13. DIAMOX SEQUELS [Suspect]
     Active Substance: ACETAZOLAMIDE
     Indication: OPEN ANGLE GLAUCOMA
     Route: 048
     Dates: start: 20070129, end: 20070130

REACTIONS (2)
  - Anosmia [None]
  - Post procedural complication [None]

NARRATIVE: CASE EVENT DATE: 20071114
